FAERS Safety Report 21194438 (Version 1)
Quarter: 2022Q3

REPORT INFORMATION
  Report Type: Spontaneous
  Country: IR (occurrence: IR)
  Receive Date: 20220810
  Receipt Date: 20220810
  Transmission Date: 20221027
  Serious: Yes (Life-Threatening, Hospitalization, Other)
  Sender: FDA-Public Use
  Company Number: IR-MLMSERVICE-20220728-3700355-1

PATIENT
  Age: 4 Year
  Sex: Male

DRUGS (8)
  1. ETOPOSIDE [Suspect]
     Active Substance: ETOPOSIDE
     Indication: Acute myelomonocytic leukaemia
     Dosage: 100 MG/M^2 PER DAY ON DAYS 1, 2, 3, 4
     Route: 042
  2. METHOTREXATE [Suspect]
     Active Substance: METHOTREXATE
     Indication: Acute myelomonocytic leukaemia
     Route: 037
  3. CYTARABINE [Suspect]
     Active Substance: CYTARABINE
     Indication: Acute myelomonocytic leukaemia
  4. HYDROCORTISONE [Suspect]
     Active Substance: HYDROCORTISONE
     Indication: Acute myelomonocytic leukaemia
     Route: 037
  5. IDARUBICIN [Suspect]
     Active Substance: IDARUBICIN
     Indication: Acute myelomonocytic leukaemia
     Dosage: 12 MG/M^2 AS A 4-HOUR IV INFUSION ON DAYS 2, 4, 6
     Route: 042
  6. THIOGUANINE [Suspect]
     Active Substance: THIOGUANINE
     Indication: Acute myelomonocytic leukaemia
     Dosage: EVERY 12 HOURS ON DAYS 1, 2, 3, 4
     Route: 048
  7. CYTARABINE [Suspect]
     Active Substance: CYTARABINE
     Indication: Acute myelomonocytic leukaemia
     Dosage: 200 MG/M^2 PER DAY ON DAYS 1, 2, 3, 4
  8. CYTARABINE [Suspect]
     Active Substance: CYTARABINE
     Indication: Acute myelomonocytic leukaemia
     Dosage: 200 MG/M^2 PER DAY ON DAYS 1, 2, 3, 4

REACTIONS (3)
  - Pericardial effusion [Recovered/Resolved]
  - Thrombocytopenia [Recovered/Resolved]
  - Respiratory distress [Recovered/Resolved]
